FAERS Safety Report 15044124 (Version 1)
Quarter: 2018Q2

REPORT INFORMATION
  Report Type: Spontaneous
  Country: US (occurrence: US)
  Receive Date: 20180621
  Receipt Date: 20180621
  Transmission Date: 20180711
  Serious: Yes (Hospitalization, Other)
  Sender: FDA-Public Use
  Company Number: US-SAOL THERAPEUTICS-2018SAO00750

PATIENT
  Age: 58 Year
  Sex: Female
  Weight: 79.37 kg

DRUGS (31)
  1. COMPOUNDED BACLOFEN [Suspect]
     Active Substance: BACLOFEN
     Dosage: 12.2 ?G, \DAY- MIN RATE
     Dates: start: 20141031
  2. COMPOUNDED BACLOFEN [Suspect]
     Active Substance: BACLOFEN
     Indication: MUSCLE SPASTICITY
     Dosage: 107.96 ?G, \DAY
     Route: 037
     Dates: start: 20180507
  3. COMPOUNDED BACLOFEN [Suspect]
     Active Substance: BACLOFEN
     Indication: MULTIPLE SCLEROSIS
     Dosage: 129.67 ?G, \DAY - MAX
     Dates: start: 20180507
  4. DILAUDID [Suspect]
     Active Substance: HYDROMORPHONE HYDROCHLORIDE
     Dosage: 0.305 MG, \DAY - MAX
     Dates: start: 20161111, end: 20170112
  5. EFFEXOR XR [Concomitant]
     Active Substance: VENLAFAXINE HYDROCHLORIDE
     Dosage: 150 MG, 1X/DAY
     Route: 048
  6. COMPOUNDED BACLOFEN [Suspect]
     Active Substance: BACLOFEN
     Indication: MUSCLE SPASTICITY
     Dosage: 315.6 ?G, \DAY
     Dates: start: 20130114, end: 20130114
  7. HYDROMORPHONE [Suspect]
     Active Substance: HYDROMORPHONE
     Dosage: 0.2159 MG, \DAY
     Dates: start: 20180507
  8. TAMSULOSIN HCL [Concomitant]
     Active Substance: TAMSULOSIN HYDROCHLORIDE
     Dosage: 0.4 MG, 1X/DAY
     Route: 048
  9. COMPOUNDED BACLOFEN [Suspect]
     Active Substance: BACLOFEN
     Dosage: 152.6 ?G, \DAY - MAX
     Dates: start: 20161111, end: 20170112
  10. COMPOUNDED BACLOFEN [Suspect]
     Active Substance: BACLOFEN
     Dosage: 378.7 ?G, \DAY
     Dates: start: 20130114
  11. DILAUDID [Suspect]
     Active Substance: HYDROMORPHONE HYDROCHLORIDE
     Dosage: 0.2812 MG, \DAY - MAX
     Dates: start: 20170112
  12. COMPOUNDED BACLOFEN [Suspect]
     Active Substance: BACLOFEN
     Indication: MUSCLE SPASTICITY
     Dosage: 108 ?G, \DAY
     Route: 037
  13. DILAUDID [Suspect]
     Active Substance: HYDROMORPHONE HYDROCHLORIDE
     Dosage: 0.3937 MG, \DAY - MAX
     Dates: start: 20130114, end: 20130114
  14. COMPOUNDED BACLOFEN [Suspect]
     Active Substance: BACLOFEN
     Dosage: 140.6 ?G, \DAY- MAX
     Dates: start: 20170112
  15. COMPOUNDED BACLOFEN [Suspect]
     Active Substance: BACLOFEN
     Indication: MULTIPLE SCLEROSIS
     Dosage: 393.7 ?G, \DAY - MAX
     Dates: start: 20130114, end: 20130114
  16. COMPOUNDED BACLOFEN [Suspect]
     Active Substance: BACLOFEN
     Dosage: 96 ?G, \DAY
     Route: 037
     Dates: start: 20141029, end: 20141031
  17. DILAUDID [Suspect]
     Active Substance: HYDROMORPHONE HYDROCHLORIDE
     Dosage: 0.2403 MG, \DAY
     Dates: start: 20161111, end: 20170112
  18. DILAUDID [Suspect]
     Active Substance: HYDROMORPHONE HYDROCHLORIDE
     Dosage: 0.2161 MG, \DAY
     Dates: start: 20170112
  19. HYDROMORPHONE [Suspect]
     Active Substance: HYDROMORPHONE
     Dosage: 0.0213 MG, \DAY - MIN RATE
     Dates: start: 20141031
  20. NARCAN [Concomitant]
     Active Substance: NALOXONE HYDROCHLORIDE
     Dosage: 0.1 ML, UNK
     Route: 045
  21. COMPOUNDED BACLOFEN [Suspect]
     Active Substance: BACLOFEN
     Dosage: 108 ?G, \DAY
     Dates: start: 20170112
  22. COMPOUNDED BACLOFEN [Suspect]
     Active Substance: BACLOFEN
     Dosage: 476.6 ?G, \DAY - MAX
     Dates: start: 20130114
  23. HYDROMORPHONE [Suspect]
     Active Substance: HYDROMORPHONE
     Dosage: 0.2593 MG, \DAY - MAX
     Route: 037
     Dates: start: 20180507
  24. OMEPRAZOLE. [Concomitant]
     Active Substance: OMEPRAZOLE
     Dosage: 20 MG, 2X/DAY
     Route: 048
  25. DILAUDID [Suspect]
     Active Substance: HYDROMORPHONE HYDROCHLORIDE
     Dosage: 0.2161 MG, \DAY
     Route: 037
  26. GABAPENTIN. [Concomitant]
     Active Substance: GABAPENTIN
     Dosage: 300 MG, 4X/DAY
     Route: 048
  27. COMPOUNDED BACLOFEN [Suspect]
     Active Substance: BACLOFEN
     Indication: MULTIPLE SCLEROSIS
     Dosage: 120.1 ?G, \DAY
     Dates: start: 20161111, end: 20170112
  28. DILAUDID [Suspect]
     Active Substance: HYDROMORPHONE HYDROCHLORIDE
     Dosage: 0.3156 MG, \DAY
     Dates: start: 20130114, end: 20130114
  29. DILAUDID [Suspect]
     Active Substance: HYDROMORPHONE HYDROCHLORIDE
     Dosage: 0.3787 MG, \DAY
     Dates: start: 20130114
  30. DILAUDID [Suspect]
     Active Substance: HYDROMORPHONE HYDROCHLORIDE
     Dosage: 0.476 MG, \DAY- MAX
     Dates: start: 20130114
  31. HYDROMORPHONE [Suspect]
     Active Substance: HYDROMORPHONE
     Dosage: 0.1680 MG, \DAY
     Route: 037
     Dates: start: 20141029, end: 20141031

REACTIONS (24)
  - Chills [Recovered/Resolved]
  - Dysarthria [Unknown]
  - Nausea [Recovering/Resolving]
  - Vomiting [Recovering/Resolving]
  - Dyspnoea [Recovered/Resolved]
  - Muscle spasticity [Unknown]
  - Menopause [Unknown]
  - Mobility decreased [Recovered/Resolved]
  - Pain [Recovered/Resolved]
  - Blood pressure increased [Recovered/Resolved]
  - Confusional state [Recovering/Resolving]
  - Limb discomfort [Unknown]
  - Radicular pain [Recovering/Resolving]
  - Drug withdrawal syndrome [Recovered/Resolved]
  - Asthenia [Recovered/Resolved]
  - Device kink [Recovered/Resolved]
  - Arthralgia [Unknown]
  - Overdose [Recovered/Resolved]
  - Device dislocation [Unknown]
  - Urinary tract infection [Unknown]
  - Mental status changes [Recovering/Resolving]
  - Dizziness [Unknown]
  - Fatigue [Unknown]
  - Hypoaesthesia oral [Unknown]

NARRATIVE: CASE EVENT DATE: 2012
